FAERS Safety Report 7589005-X (Version None)
Quarter: 2011Q3

REPORT INFORMATION
  Report Type: 
  Country: None (occurrence: None)
  Receive Date: 20110705
  Receipt Date: 20110621
  Transmission Date: 20111222
  Serious: Yes (Hospitalization)
  Sender: FDA-Public Use
  Company Number: US-JNJFOC-20110610283

PATIENT
  Sex: Female
  Weight: 51.4 kg

DRUGS (4)
  1. MERCAPTOPURINE [Concomitant]
  2. BUDESONIDE [Concomitant]
  3. INFLIXIMAB, RECOMBINANT [Suspect]
     Indication: CROHN'S DISEASE
     Route: 042
     Dates: start: 20060310, end: 20060427
  4. PROBIOTICS [Concomitant]

REACTIONS (1)
  - CROHN'S DISEASE [None]
